FAERS Safety Report 9733426 (Version 2)
Quarter: 2020Q4

REPORT INFORMATION
  Report Type: Spontaneous
  Country: CA (occurrence: CA)
  Receive Date: 20131205
  Receipt Date: 20201209
  Transmission Date: 20210114
  Serious: Yes (Hospitalization)
  Sender: FDA-Public Use
  Company Number: CA-ROCHE-1312023

PATIENT
  Age: 87 Year
  Sex: Female
  Weight: 70 kg

DRUGS (6)
  1. PRADAX [Suspect]
     Active Substance: DABIGATRAN ETEXILATE MESYLATE
     Indication: PRODUCT USED FOR UNKNOWN INDICATION
     Route: 048
  2. NITROGLYCERIN. [Concomitant]
     Active Substance: NITROGLYCERIN
  3. PANTOPRAZOLE [Concomitant]
     Active Substance: PANTOPRAZOLE
  4. NAPROXEN. [Suspect]
     Active Substance: NAPROXEN
     Indication: PRODUCT USED FOR UNKNOWN INDICATION
     Dosage: THERAPY DURATION: 11 DAYS
     Route: 048
  5. DILTIAZEM CD [Concomitant]
     Active Substance: DILTIAZEM
  6. CALCIUM [Concomitant]
     Active Substance: CALCIUM

REACTIONS (4)
  - Upper gastrointestinal haemorrhage [Unknown]
  - Angina pectoris [Unknown]
  - Gastric ulcer [Unknown]
  - Iron deficiency anaemia [Unknown]
